FAERS Safety Report 10671577 (Version 2)
Quarter: 2015Q1

REPORT INFORMATION
  Report Type: Spontaneous
  Country: US (occurrence: US)
  Receive Date: 20141223
  Receipt Date: 20150324
  Transmission Date: 20150720
  Serious: No
  Sender: FDA-Public Use
  Company Number: US-GLAXOSMITHKLINE-US2014GSK040208

PATIENT
  Sex: Male

DRUGS (1)
  1. REQUIP XL [Suspect]
     Active Substance: ROPINIROLE HYDROCHLORIDE
     Indication: PRODUCT USED FOR UNKNOWN INDICATION
     Dosage: UNK, U
     Route: 065

REACTIONS (1)
  - Drug dispensing error [Unknown]
